FAERS Safety Report 20521060 (Version 1)
Quarter: 2022Q1

REPORT INFORMATION
  Report Type: Spontaneous
  Country: US (occurrence: None)
  Receive Date: 20220225
  Receipt Date: 20220225
  Transmission Date: 20220423
  Serious: No
  Sender: FDA-Public Use
  Company Number: 2022A049568

PATIENT
  Sex: Female
  Weight: 63.5 kg

DRUGS (5)
  1. BUDESONIDE\FORMOTEROL [Suspect]
     Active Substance: BUDESONIDE\FORMOTEROL
     Indication: Asthma
     Dosage: 80/4.5 UG, TWO PUFFS TWICE A DAY
     Route: 055
  2. BUDESONIDE\FORMOTEROL [Suspect]
     Active Substance: BUDESONIDE\FORMOTEROL
     Indication: Chronic obstructive pulmonary disease
     Dosage: 80/4.5 UG, TWO PUFFS TWICE A DAY
     Route: 055
  3. PROPRANOLOL [Concomitant]
     Active Substance: PROPRANOLOL HYDROCHLORIDE
  4. LEVALBUTEROL [Concomitant]
     Active Substance: LEVALBUTEROL
  5. DEVICE [Concomitant]
     Active Substance: DEVICE

REACTIONS (2)
  - Dyspepsia [Unknown]
  - Abdominal pain upper [Unknown]
